FAERS Safety Report 22060265 (Version 2)
Quarter: 2023Q4

REPORT INFORMATION
  Report Type: Spontaneous
  Country: US (occurrence: US)
  Receive Date: 20230303
  Receipt Date: 20231124
  Transmission Date: 20240110
  Serious: No
  Sender: FDA-Public Use
  Company Number: US-BIOVITRUM-2023-US-005767

PATIENT
  Age: 19 Year
  Sex: Male

DRUGS (2)
  1. KINERET [Suspect]
     Active Substance: ANAKINRA
     Indication: Pericarditis
     Dosage: FREQUENCY: ONCE DAILY
     Route: 058
     Dates: start: 20220220
  2. KINERET [Suspect]
     Active Substance: ANAKINRA
     Indication: Myocarditis
     Dosage: FREQUENCY: ONCE DAILY
     Route: 058
     Dates: start: 20230220

REACTIONS (2)
  - Intentional product misuse [Unknown]
  - Injection site pain [Unknown]

NARRATIVE: CASE EVENT DATE: 20220220
